FAERS Safety Report 14258855 (Version 4)
Quarter: 2018Q2

REPORT INFORMATION
  Report Type: Spontaneous
  Country: US (occurrence: US)
  Receive Date: 20171207
  Receipt Date: 20180421
  Transmission Date: 20180711
  Serious: Yes (Hospitalization)
  Sender: FDA-Public Use
  Company Number: US-VIFOR (INTERNATIONAL) INC.-VIT-2017-13036

PATIENT
  Age: 69 Year
  Sex: Female

DRUGS (25)
  1. MAGNESIUM HYDROXIDE. [Concomitant]
     Active Substance: MAGNESIUM HYDROXIDE
  2. PROSOURCE PLUS [Concomitant]
  3. VELTASSA [Suspect]
     Active Substance: PATIROMER
     Indication: HYPERKALAEMIA
     Route: 048
     Dates: start: 20170926, end: 2017
  4. CLARITIN [Concomitant]
     Active Substance: LORATADINE
  5. TESSALON [Concomitant]
     Active Substance: BENZONATATE
  6. NEURONTIN [Concomitant]
     Active Substance: GABAPENTIN
  7. DULOXETINE HYDROCHLORIDE. [Concomitant]
     Active Substance: DULOXETINE HYDROCHLORIDE
  8. DEPAKOTE [Concomitant]
     Active Substance: DIVALPROEX SODIUM
  9. MIDODRINE HYDROCHLORIDE. [Concomitant]
     Active Substance: MIDODRINE HYDROCHLORIDE
  10. RENVELA [Concomitant]
     Active Substance: SEVELAMER CARBONATE
  11. TYLENOL [Concomitant]
     Active Substance: ACETAMINOPHEN
  12. XANAX [Concomitant]
     Active Substance: ALPRAZOLAM
  13. LEFLUNOMIDE. [Concomitant]
     Active Substance: LEFLUNOMIDE
  14. SYNTHROID [Concomitant]
     Active Substance: LEVOTHYROXINE SODIUM
  15. VOLTAREN [Concomitant]
     Active Substance: DICLOFENAC SODIUM
  16. ONDANSETRON [Concomitant]
     Active Substance: ONDANSETRON
  17. PERPHENAZINE. [Concomitant]
     Active Substance: PERPHENAZINE
  18. PREDNISONE. [Concomitant]
     Active Substance: PREDNISONE
  19. SYSTANE CONTACTS [Concomitant]
     Active Substance: DEXTRAN\HYPROMELLOSES
  20. ACETYLSALICYLIC ACID [Concomitant]
     Active Substance: ASPIRIN
  21. PROPYLENE GLYCOL [Concomitant]
     Active Substance: PROPYLENE GLYCOL
  22. NORCO [Concomitant]
     Active Substance: ACETAMINOPHEN\HYDROCODONE BITARTRATE
  23. PROCTOFOAM HC [Concomitant]
     Active Substance: HYDROCORTISONE ACETATE\PRAMOXINE HYDROCHLORIDE
  24. REMERON [Concomitant]
     Active Substance: MIRTAZAPINE
  25. SENSIPAR [Concomitant]
     Active Substance: CINACALCET HYDROCHLORIDE

REACTIONS (4)
  - Fluid overload [Unknown]
  - Respiratory disorder [Unknown]
  - Pneumonia [Unknown]
  - Chronic obstructive pulmonary disease [Unknown]

NARRATIVE: CASE EVENT DATE: 2017
